FAERS Safety Report 8420138-1 (Version None)
Quarter: 2012Q2

REPORT INFORMATION
  Report Type: 
  Country: None (occurrence: None)
  Receive Date: 20120607
  Receipt Date: 20120601
  Transmission Date: 20120825
  Serious: Yes (Life-Threatening, Hospitalization)
  Sender: FDA-Public Use
  Company Number: DE-BAXTER-2012BAX003942

PATIENT
  Sex: Female

DRUGS (9)
  1. EPIRUBICIN [Suspect]
     Indication: BREAST CANCER
     Route: 042
     Dates: start: 20120416, end: 20120416
  2. PREDNISONE TAB [Concomitant]
     Indication: RHEUMATOID ARTHRITIS
     Route: 048
  3. DEXAMETHASONE [Concomitant]
     Indication: PROPHYLAXIS
     Route: 042
     Dates: start: 20120416, end: 20120416
  4. SODIUM CHLORIDE [Concomitant]
     Indication: FLUID REPLACEMENT
     Route: 042
     Dates: start: 20120416, end: 20120416
  5. CYCLOPHOSPHAMIDE [Suspect]
     Indication: BREAST CANCER
     Route: 042
     Dates: start: 20120416, end: 20120416
  6. APREPITANT [Concomitant]
     Indication: PROPHYLAXIS
     Route: 048
     Dates: start: 20120416, end: 20120416
  7. MESNA [Concomitant]
     Indication: PROPHYLAXIS
     Route: 065
     Dates: start: 20120416, end: 20120416
  8. GRANISETRON [Concomitant]
     Indication: PROPHYLAXIS
     Route: 042
     Dates: start: 20120416, end: 20120416
  9. HYDROXYCHLOROQUINE SULFATE [Concomitant]
     Indication: RHEUMATOID ARTHRITIS
     Route: 048

REACTIONS (4)
  - INAPPROPRIATE ANTIDIURETIC HORMONE SECRETION [None]
  - NAUSEA [None]
  - COMA [None]
  - VOMITING [None]
